FAERS Safety Report 9242988 (Version 3)
Quarter: 2013Q4

REPORT INFORMATION
  Report Type: Spontaneous
  Country: FR (occurrence: FR)
  Receive Date: 20130419
  Receipt Date: 20131016
  Transmission Date: 20140711
  Serious: Yes (Other)
  Sender: FDA-Public Use
  Company Number: FR-ELI_LILLY_AND_COMPANY-FR201304004886

PATIENT
  Sex: Female

DRUGS (7)
  1. ALIMTA [Suspect]
     Indication: PLEURAL MESOTHELIOMA MALIGNANT
     Dosage: 500 MG/M2, UNKNOWN
     Route: 042
  2. CISPLATINE [Concomitant]
     Indication: PLEURAL MESOTHELIOMA MALIGNANT
  3. SPECIAFOLDINE [Concomitant]
     Indication: PREMEDICATION
  4. SOLUPRED                           /00016201/ [Concomitant]
  5. SOLUMEDROL [Concomitant]
  6. ALPRAZOLAM [Concomitant]
  7. ONDANSETRON [Concomitant]
     Dosage: 16 MG, UNK
     Route: 042
     Dates: start: 20130304

REACTIONS (5)
  - Tachycardia [Recovered/Resolved]
  - Hypotension [Recovered/Resolved]
  - Rash [Recovered/Resolved]
  - Hyperhidrosis [Recovered/Resolved]
  - Syncope [Recovered/Resolved]
